FAERS Safety Report 10736545 (Version 1)
Quarter: 2015Q1

REPORT INFORMATION
  Report Type: Spontaneous
  Country: CH (occurrence: CH)
  Receive Date: 20150126
  Receipt Date: 20150126
  Transmission Date: 20150721
  Serious: Yes (Other)
  Sender: FDA-Public Use
  Company Number: CH-TEVA-535150ISR

PATIENT
  Age: 86 Year
  Sex: Male

DRUGS (5)
  1. ATORVASTATIN-MEPHA 40MG [Suspect]
     Active Substance: ATORVASTATIN
     Dosage: PATIENT TOOK ATORVASTATIN APPROX. SINCE 2 YEARS
     Route: 065
  2. METO ZEROK [Concomitant]
     Active Substance: METOPROLOL SUCCINATE
     Route: 065
  3. LAMICTAL [Concomitant]
     Active Substance: LAMOTRIGINE
     Indication: EPILEPSY
     Route: 065
  4. DUODART [Concomitant]
     Active Substance: DUTASTERIDE\TAMSULOSIN
     Indication: BENIGN PROSTATIC HYPERPLASIA
     Route: 065
  5. EUTHYROX [Concomitant]
     Active Substance: LEVOTHYROXINE SODIUM
     Indication: HYPOTHYROIDISM
     Route: 065

REACTIONS (2)
  - Hepatic neoplasm [Unknown]
  - Liver function test abnormal [Unknown]

NARRATIVE: CASE EVENT DATE: 201501
